FAERS Safety Report 17533585 (Version 2)
Quarter: 2020Q1

REPORT INFORMATION
  Report Type: Report from Study
  Country: FR (occurrence: FR)
  Receive Date: 20200312
  Receipt Date: 20200313
  Transmission Date: 20200409
  Serious: Yes (Hospitalization, Other)
  Sender: FDA-Public Use
  Company Number: PHHY2019FR107390

PATIENT
  Age: 28 Year
  Sex: Male
  Weight: 69 kg

DRUGS (1)
  1. GILENYA [Suspect]
     Active Substance: FINGOLIMOD HYDROCHLORIDE
     Indication: RELAPSING-REMITTING MULTIPLE SCLEROSIS
     Dosage: 0.5 MG, QD
     Route: 048
     Dates: start: 20180220, end: 20200131

REACTIONS (21)
  - Generalised tonic-clonic seizure [Recovered/Resolved]
  - Pneumonitis [Recovered/Resolved]
  - Central nervous system lesion [Unknown]
  - Generalised tonic-clonic seizure [Recovered/Resolved]
  - Lung disorder [Recovered/Resolved]
  - Generalised tonic-clonic seizure [Recovered/Resolved]
  - Confusional state [Unknown]
  - Anal incontinence [Unknown]
  - Generalised tonic-clonic seizure [Recovered/Resolved]
  - Cerebral atrophy [Unknown]
  - Bronchitis [Recovered/Resolved]
  - Fall [Unknown]
  - Status epilepticus [Recovered/Resolved]
  - Sinusitis [Unknown]
  - Loss of consciousness [Unknown]
  - Hemiparesis [Unknown]
  - Vomiting [Unknown]
  - Urinary incontinence [Unknown]
  - Intracranial hypotension [Unknown]
  - Salivary hypersecretion [Unknown]
  - Partial seizures [Recovered/Resolved with Sequelae]

NARRATIVE: CASE EVENT DATE: 201811
